FAERS Safety Report 19198096 (Version 1)
Quarter: 2021Q2

REPORT INFORMATION
  Report Type: Report from Study
  Country: US (occurrence: US)
  Receive Date: 20210429
  Receipt Date: 20210429
  Transmission Date: 20210717
  Serious: Yes (Hospitalization, Other)
  Sender: FDA-Public Use
  Company Number: US-SHIRE-US201919423

PATIENT
  Sex: Male

DRUGS (1)
  1. IDURSULFASE [Suspect]
     Active Substance: IDURSULFASE
     Indication: MUCOPOLYSACCHARIDOSIS II
     Dosage: UNK
     Route: 065
     Dates: start: 20070531

REACTIONS (6)
  - Respiratory failure [Unknown]
  - Respiratory distress [Unknown]
  - Cardiac arrest [Unknown]
  - Infusion related reaction [Recovered/Resolved]
  - Dyspnoea [Unknown]
  - Acute respiratory failure [Recovered/Resolved]

NARRATIVE: CASE EVENT DATE: 20161011
